FAERS Safety Report 6429801-5 (Version None)
Quarter: 2009Q4

REPORT INFORMATION
  Report Type: 
  Country: None (occurrence: None)
  Receive Date: 20091106
  Receipt Date: 20091030
  Transmission Date: 20100525
  Serious: Yes (Hospitalization)
  Sender: FDA-Public Use
  Company Number: PHHO2008GB00690

PATIENT
  Sex: Male

DRUGS (5)
  1. STI571/CGP57148B T35717+CAPS [Suspect]
     Indication: CHRONIC MYELOID LEUKAEMIA
     Dosage: 800 MG, QD
     Route: 048
     Dates: start: 20070517, end: 20070529
  2. STI571/CGP57148B T35717+CAPS [Suspect]
     Dosage: NO TREATMENT
     Route: 048
     Dates: start: 20070530, end: 20070617
  3. STI571/CGP57148B T35717+CAPS [Suspect]
     Dosage: 800 MG, QD
     Route: 048
     Dates: start: 20070619, end: 20070626
  4. STI571/CGP57148B T35717+CAPS [Suspect]
     Dosage: NO TREATMENT
     Dates: start: 20070627, end: 20070709
  5. STI571/CGP57148B T35717+CAPS [Suspect]
     Dosage: 800 MG, QD
     Route: 048
     Dates: start: 20070710, end: 20071016

REACTIONS (2)
  - HEPATIC NECROSIS [None]
  - LIVER FUNCTION TEST ABNORMAL [None]
